FAERS Safety Report 20134566 (Version 1)
Quarter: 2021Q4

REPORT INFORMATION
  Report Type: Spontaneous
  Country: CA (occurrence: CA)
  Receive Date: 20211201
  Receipt Date: 20211201
  Transmission Date: 20220304
  Serious: Yes (Hospitalization)
  Sender: FDA-Public Use
  Company Number: CA-TEVA-2021-CA-1981360

PATIENT
  Age: 66 Year
  Sex: Male

DRUGS (1)
  1. IBUPROFEN [Suspect]
     Active Substance: IBUPROFEN
     Dosage: 3200 MILLIGRAM DAILY;
     Route: 048

REACTIONS (4)
  - Haematemesis [Unknown]
  - Melaena [Unknown]
  - Oesophageal ulcer [Unknown]
  - Oesophagitis ulcerative [Unknown]
